FAERS Safety Report 11277795 (Version 1)
Quarter: 2015Q3

REPORT INFORMATION
  Report Type: Report from Study
  Country: HU (occurrence: HU)
  Receive Date: 20150716
  Receipt Date: 20150716
  Transmission Date: 20151125
  Serious: Yes (Hospitalization)
  Sender: FDA-Public Use
  Company Number: HU-JNJFOC-20131110128

PATIENT
  Age: 43 Year
  Sex: Female
  Weight: 61 kg

DRUGS (14)
  1. BISOPROLOL [Concomitant]
     Active Substance: BISOPROLOL
     Indication: HYPERTENSION
     Route: 048
     Dates: start: 20050301
  2. MESALAZINE [Concomitant]
     Active Substance: MESALAMINE
     Indication: CROHN^S DISEASE
     Route: 048
     Dates: start: 20130731
  3. FOLIC ACID. [Concomitant]
     Active Substance: FOLIC ACID
     Indication: CROHN^S DISEASE
     Route: 048
     Dates: start: 20000602
  4. MILLIGEST [Concomitant]
     Indication: CONTRACEPTION
     Route: 048
     Dates: start: 20030401
  5. USTEKINUMAB [Suspect]
     Active Substance: USTEKINUMAB
     Indication: CROHN^S DISEASE
     Dosage: SC BEGINNING AT WEEK 8 MAINTENANCE
     Route: 058
  6. RIFAXIMIN [Concomitant]
     Active Substance: RIFAXIMIN
     Indication: CROHN^S DISEASE
     Route: 048
     Dates: start: 20131031
  7. USTEKINUMAB [Suspect]
     Active Substance: USTEKINUMAB
     Indication: CROHN^S DISEASE
     Dosage: WEEK 20 VISIT
     Route: 058
     Dates: start: 20131031
  8. RABEPRAZOLE [Concomitant]
     Active Substance: RABEPRAZOLE
     Indication: GASTROOESOPHAGEAL REFLUX DISEASE
     Route: 048
     Dates: start: 20090610
  9. DROTAVERIN [Concomitant]
     Active Substance: DROTAVERINE
     Indication: CROHN^S DISEASE
     Route: 048
     Dates: start: 201303
  10. FERRIC SODIUM GLUCONATE COMPLEX [Concomitant]
     Indication: SUPPLEMENTATION THERAPY
     Route: 042
     Dates: start: 20120412
  11. USTEKINUMAB [Suspect]
     Active Substance: USTEKINUMAB
     Indication: CROHN^S DISEASE
     Dosage: IV AT WEEK 0 MAINTENANCE
     Route: 058
     Dates: start: 20130614
  12. MESALAZINE [Concomitant]
     Active Substance: MESALAMINE
     Indication: CROHN^S DISEASE
     Route: 048
     Dates: start: 20000120
  13. METHYLPREDNISOLONE. [Concomitant]
     Active Substance: METHYLPREDNISOLONE
     Indication: CROHN^S DISEASE
     Route: 048
     Dates: start: 20130801
  14. PARACETAMOL [Concomitant]
     Active Substance: ACETAMINOPHEN
     Indication: CROHN^S DISEASE
     Route: 048
     Dates: start: 201304

REACTIONS (1)
  - Anal abscess [Recovered/Resolved]

NARRATIVE: CASE EVENT DATE: 20131109
